FAERS Safety Report 13133066 (Version 1)
Quarter: 2017Q1

REPORT INFORMATION
  Report Type: Spontaneous
  Country: US (occurrence: US)
  Receive Date: 20170118
  Receipt Date: 20170118
  Transmission Date: 20170428
  Serious: Yes (Hospitalization)
  Sender: FDA-Public Use
  Company Number: None

PATIENT
  Age: 48 Year
  Sex: Female

DRUGS (1)
  1. IBRANCE [Suspect]
     Active Substance: PALBOCICLIB
     Indication: NEOPLASM MALIGNANT
     Dosage: 125MG EVERY DAY FOR 21 DAYS ON, 7 DAYS BY MOUTH
     Route: 048
     Dates: start: 20161221

REACTIONS (5)
  - Loss of consciousness [None]
  - Fatigue [None]
  - Confusional state [None]
  - Nasopharyngitis [None]
  - Asthenia [None]

NARRATIVE: CASE EVENT DATE: 20170112
